FAERS Safety Report 5963833-6 (Version None)
Quarter: 2008Q4

REPORT INFORMATION
  Report Type: 
  Country: None (occurrence: None)
  Receive Date: 20081120
  Receipt Date: 20081118
  Transmission Date: 20090506
  Serious: Yes (Death, Hospitalization)
  Sender: FDA-Public Use
  Company Number: 2008SP022942

PATIENT
  Age: 55 Year
  Sex: Male

DRUGS (2)
  1. POSACONAZOLE [Suspect]
     Indication: PROPHYLAXIS
     Dosage: 400 MG BID
     Dates: start: 20070101, end: 20070501
  2. STEROIDS [Concomitant]

REACTIONS (5)
  - CENTRAL NERVOUS SYSTEM LESION [None]
  - COMA [None]
  - CONVULSION [None]
  - GASTROINTESTINAL HAEMORRHAGE [None]
  - ZYGOMYCOSIS [None]
